FAERS Safety Report 7382842-6 (Version None)
Quarter: 2011Q1

REPORT INFORMATION
  Report Type: 
  Country: None (occurrence: None)
  Receive Date: 20110330
  Receipt Date: 20110323
  Transmission Date: 20110831
  Serious: Yes (Life-Threatening)
  Sender: FDA-Public Use
  Company Number: GR-AMGEN-GRCSP2011016326

PATIENT
  Age: 71 Year
  Sex: Female
  Weight: 60 kg

DRUGS (8)
  1. FOSAMAX [Concomitant]
     Dosage: 70 MG, UNK
     Route: 048
  2. PREZOLON [Concomitant]
     Dosage: 5MG EVERY DAY
     Route: 048
  3. METHOTREXATE SODIUM [Suspect]
     Indication: RHEUMATOID ARTHRITIS
     Dosage: 10MG WEEKLY
     Route: 048
  4. ENBREL [Suspect]
     Indication: RHEUMATOID ARTHRITIS
     Dosage: 50MG WEEKLY
     Route: 058
     Dates: start: 20060101, end: 20100605
  5. GLUCOPHAGE [Concomitant]
     Dosage: 850MG EVERY DAY
     Route: 048
  6. TENORMIN [Concomitant]
     Dosage: 12.5MG EVERY DAY
     Route: 048
  7. ISCOVER [Concomitant]
     Dosage: 75MG EVERY DAY
     Route: 048
  8. CONTROLOC                          /01263201/ [Concomitant]
     Dosage: 40MG EVERY DAY
     Route: 048

REACTIONS (3)
  - MELAENA [None]
  - SMALL INTESTINE CARCINOMA [None]
  - IRON DEFICIENCY ANAEMIA [None]
